FAERS Safety Report 21165535 (Version 1)
Quarter: 2022Q3

REPORT INFORMATION
  Report Type: Report from Study
  Country: CA (occurrence: CA)
  Receive Date: 20220803
  Receipt Date: 20220803
  Transmission Date: 20221026
  Serious: Yes (Other)
  Sender: FDA-Public Use
  Company Number: None

PATIENT
  Age: 72 Year
  Sex: Female

DRUGS (20)
  1. MYCOPHENOLATE MOFETIL HYDROCHLORIDE [Suspect]
     Active Substance: MYCOPHENOLATE MOFETIL HYDROCHLORIDE
     Indication: Product used for unknown indication
     Dosage: 2 EVERY 1 DAY
     Route: 048
  2. RITUXIMAB [Suspect]
     Active Substance: RITUXIMAB
     Indication: Pemphigus
     Route: 042
  3. ALUMINUM [Concomitant]
     Active Substance: ALUMINUM
     Dosage: 2 EVERY 1 DAYS
  4. OXAZEPAM [Concomitant]
     Active Substance: OXAZEPAM
     Dosage: 1 EVERY 1 DAYS
     Route: 048
  5. PREDNISONE [Concomitant]
     Active Substance: PREDNISONE
     Dosage: 1 EVERY 1 DAYS
     Route: 048
  6. ASPIRIN [Concomitant]
     Active Substance: ASPIRIN
     Dosage: 1 EVERY 1 DAYS
     Route: 048
  7. BENADRYL [Concomitant]
     Active Substance: DIPHENHYDRAMINE HYDROCHLORIDE
     Dosage: 1 EVERY 1 DAYS
     Route: 048
  8. DAPSONE [Concomitant]
     Active Substance: DAPSONE
     Dosage: 1 EVERY 1 DAYS
  9. DEXILANT [Concomitant]
     Active Substance: DEXLANSOPRAZOLE
     Dosage: CAPSULE, DELAYED RELEASE, 1 EVERY 1 DAYS
     Route: 048
  10. DILAUDID [Concomitant]
     Active Substance: HYDROMORPHONE HYDROCHLORIDE
     Indication: Pain
     Route: 048
  11. EZETIMIBE [Concomitant]
     Active Substance: EZETIMIBE
     Dosage: 1 EVERY 1 DAYS
     Route: 048
  12. FUROSEMIDE [Concomitant]
     Active Substance: FUROSEMIDE
     Dosage: 1 EVERY 1 DAYS
     Route: 048
  13. HYDROXYZINE [Concomitant]
     Active Substance: HYDROXYZINE HYDROCHLORIDE
     Indication: Pruritus
     Dosage: 4 EVERY 1 DAYS
     Route: 048
  14. POLYETHYLENE GLYCOL 3350 [Concomitant]
     Active Substance: POLYETHYLENE GLYCOL 3350
     Dosage: 1 EVERY 1 DAYS
  15. METHYLPREDNISOLONE SODIUM SUCCINATE [Concomitant]
     Active Substance: METHYLPREDNISOLONE SODIUM SUCCINATE
     Route: 042
  16. PERINDOPRIL [Concomitant]
     Active Substance: PERINDOPRIL
     Dosage: 1 EVERY 1 DAYS
     Route: 048
  17. TYLENOL [Concomitant]
     Active Substance: ACETAMINOPHEN
     Route: 048
  18. VITAMIN D3 [Concomitant]
     Active Substance: CHOLECALCIFEROL
     Dosage: 1 EVERY 1 WEEK
     Route: 048
  19. RITUXIMAB [Suspect]
     Active Substance: RITUXIMAB
     Indication: Pemphigus
  20. FUROSEMIDE [Concomitant]
     Active Substance: FUROSEMIDE
     Dosage: 1 EVERY 1 DAYS
     Route: 048

REACTIONS (6)
  - Blood pressure fluctuation [Unknown]
  - Blood pressure increased [Unknown]
  - Blood pressure systolic increased [Unknown]
  - Onychomadesis [Unknown]
  - Pemphigoid [Unknown]
  - Pemphigus [Unknown]
